FAERS Safety Report 17675647 (Version 7)
Quarter: 2022Q4

REPORT INFORMATION
  Report Type: Report from Study
  Country: US (occurrence: US)
  Receive Date: 20200416
  Receipt Date: 20221219
  Transmission Date: 20230113
  Serious: Yes (Hospitalization, Other)
  Sender: FDA-Public Use
  Company Number: US-TAKEDA-2020TUS018607

PATIENT
  Age: 66 Year
  Sex: Female

DRUGS (3)
  1. VEDOLIZUMAB [Suspect]
     Active Substance: VEDOLIZUMAB
     Indication: Colitis ulcerative
     Dosage: UNK
     Route: 042
  2. VEDOLIZUMAB [Suspect]
     Active Substance: VEDOLIZUMAB
     Dosage: UNK UNK, Q4WEEKS
     Route: 042
  3. VEDOLIZUMAB [Suspect]
     Active Substance: VEDOLIZUMAB
     Dosage: 300 MILLIGRAM
     Route: 042

REACTIONS (19)
  - Localised infection [Unknown]
  - Foot fracture [Unknown]
  - Gastrooesophageal reflux disease [Not Recovered/Not Resolved]
  - Cholelithiasis [Unknown]
  - Cellulitis [Unknown]
  - Diabetes mellitus [Not Recovered/Not Resolved]
  - Weight decreased [Unknown]
  - Back disorder [Not Recovered/Not Resolved]
  - Asthma [Not Recovered/Not Resolved]
  - Scoliosis [Not Recovered/Not Resolved]
  - Dizziness [Unknown]
  - Toxicity to various agents [Unknown]
  - Gastric disorder [Unknown]
  - Stress [Unknown]
  - Constipation [Not Recovered/Not Resolved]
  - Malaise [Not Recovered/Not Resolved]
  - Herpes zoster [Unknown]
  - Oropharyngeal discomfort [Not Recovered/Not Resolved]
  - Off label use [Unknown]

NARRATIVE: CASE EVENT DATE: 20200414
